FAERS Safety Report 7907153-9 (Version None)
Quarter: 2011Q4

REPORT INFORMATION
  Report Type: 
  Country: None (occurrence: None)
  Receive Date: 20111109
  Receipt Date: 20111024
  Transmission Date: 20120403
  Serious: Yes (Hospitalization)
  Sender: FDA-Public Use
  Company Number: INT_00035_2011

PATIENT
  Age: 24 Year
  Sex: Female

DRUGS (3)
  1. CEFTRIAXON [Suspect]
     Indication: PRODUCT USED FOR UNKNOWN INDICATION
     Dosage: (1 G QD, 4 GRAMS TOTAL (FREQUENCY UNKNOWN) INTRAVENOUS (NOT OTHERWISE SPECIFIED))
     Route: 042
  2. RANITIDINE [Concomitant]
  3. PIROXICAM [Concomitant]

REACTIONS (3)
  - POST PROCEDURAL COMPLICATION [None]
  - LIVER INJURY [None]
  - HEPATITIS CHOLESTATIC [None]
